FAERS Safety Report 13794396 (Version 7)
Quarter: 2020Q1

REPORT INFORMATION
  Report Type: Spontaneous
  Country: US (occurrence: US)
  Receive Date: 20170726
  Receipt Date: 20200212
  Transmission Date: 20200409
  Serious: No
  Sender: FDA-Public Use
  Company Number: US-PFIZER INC-2017320122

PATIENT
  Age: 63 Year
  Sex: Female
  Weight: 69.84 kg

DRUGS (5)
  1. EXEMESTANE. [Concomitant]
     Active Substance: EXEMESTANE
     Dosage: 25 MG, 1X/DAY
     Dates: start: 2017
  2. SIMVASTATIN. [Concomitant]
     Active Substance: SIMVASTATIN
     Dosage: 20 MG, UNK
  3. ATENOLOL. [Concomitant]
     Active Substance: ATENOLOL
     Dosage: 25 MG, UNK
  4. IBRANCE [Suspect]
     Active Substance: PALBOCICLIB
     Dosage: 100 MG, CYCLIC (DAILY, FOR 3 WEEKS ON 2 WEEKS OFF (INSTEAD OF 7))
     Dates: start: 201706
  5. IBRANCE [Suspect]
     Active Substance: PALBOCICLIB
     Indication: BREAST CANCER STAGE IV
     Dosage: 125 MG, UNK

REACTIONS (3)
  - Blood count abnormal [Unknown]
  - White blood cell count decreased [Unknown]
  - Neutrophil count decreased [Unknown]
